FAERS Safety Report 7368938-3 (Version None)
Quarter: 2011Q1

REPORT INFORMATION
  Report Type: 
  Country: None (occurrence: None)
  Receive Date: 20110308
  Receipt Date: 20110218
  Transmission Date: 20110831
  Serious: Yes (Other)
  Sender: FDA-Public Use
  Company Number: 2011SP009267

PATIENT
  Age: 4 Year
  Sex: Male

DRUGS (1)
  1. METHYLPREDNISOLONE SODIUM SUCCINATE [Suspect]
     Indication: DERMATOMYOSITIS

REACTIONS (7)
  - ABDOMINAL PAIN [None]
  - SKIN TEST POSITIVE [None]
  - PALLOR [None]
  - OXYGEN SATURATION DECREASED [None]
  - URTICARIA [None]
  - VOMITING [None]
  - HYPERSENSITIVITY [None]
